FAERS Safety Report 10245288 (Version 6)
Quarter: 2016Q2

REPORT INFORMATION
  Report Type: Spontaneous
  Country: CA (occurrence: CA)
  Receive Date: 20140618
  Receipt Date: 20160420
  Transmission Date: 20160815
  Serious: Yes (Hospitalization, Other)
  Sender: FDA-Public Use
  Company Number: CA-ROCHE-1419266

PATIENT
  Age: 44 Year
  Sex: Female

DRUGS (11)
  1. APO-RAMIPRIL [Concomitant]
     Active Substance: RAMIPRIL
  2. PREDNISONE. [Concomitant]
     Active Substance: PREDNISONE
     Route: 065
  3. BENADRYL [Concomitant]
     Active Substance: DIPHENHYDRAMINE HYDROCHLORIDE
     Indication: URTICARIA
     Route: 065
  4. FLOVENT [Concomitant]
     Active Substance: FLUTICASONE PROPIONATE
  5. VOLTRIX [Concomitant]
  6. VENTOLIN [Concomitant]
     Active Substance: ALBUTEROL SULFATE
  7. INFLUENZA VACCINE [Concomitant]
     Active Substance: INFLUENZA VIRUS VACCINE
  8. XOLAIR [Suspect]
     Active Substance: OMALIZUMAB
     Indication: ASTHMA
     Route: 058
     Dates: start: 20140523
  9. XOLAIR [Suspect]
     Active Substance: OMALIZUMAB
     Indication: URTICARIA CHRONIC
  10. SINGULAIR [Concomitant]
     Active Substance: MONTELUKAST SODIUM
  11. SEREVENT DISKUS [Concomitant]
     Active Substance: SALMETEROL XINAFOATE

REACTIONS (29)
  - Anxiety [Unknown]
  - Facial pain [Unknown]
  - Allergic granulomatous angiitis [Unknown]
  - Abdominal discomfort [Recovered/Resolved]
  - Headache [Unknown]
  - Rash [Unknown]
  - Swelling [Not Recovered/Not Resolved]
  - Pyrexia [Unknown]
  - Hypersensitivity [Recovering/Resolving]
  - Paralysis [Unknown]
  - Sciatica [Unknown]
  - Urticaria [Unknown]
  - Malaise [Unknown]
  - Pain in jaw [Unknown]
  - Fatigue [Unknown]
  - Swollen tongue [Not Recovered/Not Resolved]
  - Chronic inflammatory demyelinating polyradiculoneuropathy [Unknown]
  - Pain [Unknown]
  - Dyspnoea [Recovering/Resolving]
  - Guillain-Barre syndrome [Unknown]
  - Throat irritation [Recovered/Resolved]
  - Hypoaesthesia [Recovering/Resolving]
  - Nausea [Unknown]
  - Cough [Unknown]
  - Pruritus [Unknown]
  - Contusion [Unknown]
  - Paraesthesia [Unknown]
  - Sensory disturbance [Unknown]
  - Hypomenorrhoea [Unknown]

NARRATIVE: CASE EVENT DATE: 20140523
